FAERS Safety Report 18330438 (Version 1)
Quarter: 2020Q3

REPORT INFORMATION
  Report Type: Spontaneous
  Country: DE (occurrence: DE)
  Receive Date: 20200930
  Receipt Date: 20200930
  Transmission Date: 20201103
  Serious: Yes (Hospitalization)
  Sender: FDA-Public Use
  Company Number: DE-MYLANLABS-2020M1081864

PATIENT
  Age: 23 Year
  Sex: Female

DRUGS (12)
  1. ZOLPIDEM [Suspect]
     Active Substance: ZOLPIDEM TARTRATE
     Indication: PRODUCT USED FOR UNKNOWN INDICATION
     Dosage: 30 MILLIGRAM, QD (30 MG, 0?0?0?1)
     Route: 048
  2. MYFORTIC [Concomitant]
     Active Substance: MYCOPHENOLATE SODIUM
     Dosage: 360 MILLIGRAM (360 MG, 2?0?2?0)
     Route: 048
  3. TILIDINE [Concomitant]
     Active Substance: TILIDINE
     Dosage: NK MG, 30?40?30?0, TROPFEN
     Route: 048
  4. PREGABALIN. [Concomitant]
     Active Substance: PREGABALIN
     Dosage: 50 MILLIGRAM, QD (50 MG, 0?0?1?0)
     Route: 048
  5. BISOPROLOL [Concomitant]
     Active Substance: BISOPROLOL
     Dosage: 5 MILLIGRAM, BID (5 MG, 1?0?1?0)
     Route: 048
  6. ALLOPURINOL. [Concomitant]
     Active Substance: ALLOPURINOL
     Dosage: 100 MILLIGRAM (100 MG, 2?0?0?0)
     Route: 048
  7. PROGRAF [Concomitant]
     Active Substance: TACROLIMUS
     Dosage: 1 MILLIGRAM (1 MG, 3?0?2?0)
     Route: 048
  8. NEPHROTRANS [Concomitant]
     Active Substance: SODIUM BICARBONATE
     Dosage: 840 MILLIGRAM (840 MG, 4?0?4?0)
     Route: 048
  9. FLUVASTATIN [Concomitant]
     Active Substance: FLUVASTATIN SODIUM
     Dosage: 40 MILLIGRAM, QD (40 MG, 0?0?1?0)
     Route: 048
  10. FUROSEMID                          /00032601/ [Concomitant]
     Active Substance: FUROSEMIDE
     Dosage: 40 MILLIGRAM, QD (40 MG, 0?0?1?0)
     Route: 048
  11. CEFPODOXIME [Concomitant]
     Active Substance: CEFPODOXIME
     Dosage: 200 MILLIGRAM (200 MG, ABGESETZT 07042020)
     Route: 048
  12. PREDNISOLON                        /00016201/ [Concomitant]
     Active Substance: PREDNISOLONE
     Dosage: 5 MILLIGRAM, QD (5 MG, 1?0?0?0)
     Route: 048

REACTIONS (6)
  - Hyperhidrosis [Unknown]
  - Withdrawal syndrome [Unknown]
  - Tremor [Unknown]
  - Restlessness [Unknown]
  - Confusional state [Unknown]
  - Product prescribing error [Unknown]
